FAERS Safety Report 11833858 (Version 2)
Quarter: 2016Q1

REPORT INFORMATION
  Report Type: Report from Study
  Country: US (occurrence: US)
  Receive Date: 20151214
  Receipt Date: 20160217
  Transmission Date: 20160525
  Serious: Yes (Hospitalization, Other)
  Sender: FDA-Public Use
  Company Number: US-GILEAD-2015-0187893

PATIENT
  Age: 87 Year
  Sex: Male

DRUGS (1)
  1. AMBRISENTAN [Suspect]
     Active Substance: AMBRISENTAN
     Indication: LUNG DISORDER
     Dosage: 10 MG, QD
     Route: 065
     Dates: start: 20151112

REACTIONS (1)
  - Tracheostomy [Recovering/Resolving]

NARRATIVE: CASE EVENT DATE: 20151112
